FAERS Safety Report 12069099 (Version 1)
Quarter: 2016Q1

REPORT INFORMATION
  Report Type: Spontaneous
  Country: US (occurrence: US)
  Receive Date: 20160211
  Receipt Date: 20160211
  Transmission Date: 20160526
  Serious: No
  Sender: FDA-Public Use
  Company Number: US-ELI_LILLY_AND_COMPANY-US201601006161

PATIENT
  Sex: Male

DRUGS (1)
  1. HUMULIN 70/30 [Suspect]
     Active Substance: INSULIN HUMAN
     Indication: TYPE 2 DIABETES MELLITUS
     Dosage: UNK, UNKNOWN
     Route: 065
     Dates: start: 201511

REACTIONS (11)
  - Eye pain [Unknown]
  - Incorrect dose administered [Unknown]
  - Gastric disorder [Unknown]
  - Nausea [Unknown]
  - Diabetes mellitus [Unknown]
  - Muscle spasms [Unknown]
  - Headache [Unknown]
  - Blood glucose decreased [Unknown]
  - Vomiting [Unknown]
  - Drug dose omission [Unknown]
  - Dizziness [Unknown]
